FAERS Safety Report 4665071-6 (Version None)
Quarter: 2005Q2

REPORT INFORMATION
  Report Type: 
  Country: None (occurrence: None)
  Receive Date: 20050517
  Receipt Date: 20050428
  Transmission Date: 20051028
  Serious: Yes (Life-Threatening)
  Sender: FDA-Public Use
  Company Number: JP_050506492

PATIENT
  Age: 53 Year
  Sex: Male

DRUGS (5)
  1. ZYPREXA [Suspect]
     Indication: SCHIZOPHRENIA
     Dosage: 20 MG DAY
  2. CHLOROPROMAZINE [Concomitant]
  3. LULLAN (PEROSPIRONE HYDROCHLORIDE) [Concomitant]
  4. LORAZEPAM [Concomitant]
  5. LASIX [Concomitant]

REACTIONS (1)
  - HEPATITIS FULMINANT [None]
